FAERS Safety Report 11067615 (Version 3)
Quarter: 2015Q3

REPORT INFORMATION
  Report Type: Spontaneous
  Country: US (occurrence: US)
  Receive Date: 20150427
  Receipt Date: 20150921
  Transmission Date: 20151125
  Serious: Yes (Other)
  Sender: FDA-Public Use
  Company Number: US-BEH-2015050513

PATIENT
  Age: 20 Year
  Sex: Female
  Weight: 55 kg

DRUGS (12)
  1. PRIVIGEN [Suspect]
     Active Substance: HUMAN IMMUNOGLOBULIN G
     Route: 042
  2. DIPHENHYDRAMINE. [Concomitant]
     Active Substance: DIPHENHYDRAMINE
     Dosage: PRIOR TO INFUSION
     Route: 048
  3. SODIUM CHLORIDE 0.9% [Concomitant]
     Active Substance: SODIUM CHLORIDE
     Dosage: AS DIRECTED
  4. ACETAMINOPHEN. [Concomitant]
     Active Substance: ACETAMINOPHEN
     Dosage: PRIOR TO INFUSION
     Route: 048
  5. ZYRTEC [Concomitant]
     Active Substance: CETIRIZINE HYDROCHLORIDE
     Dosage: PRIOR TO INFUSION
     Route: 048
  6. PROZAC [Concomitant]
     Active Substance: FLUOXETINE HYDROCHLORIDE
     Route: 048
  7. LIDOCAINE 4% [Concomitant]
     Dosage: PRIOR TO INFUSION
     Route: 061
  8. SYNTHROID [Concomitant]
     Active Substance: LEVOTHYROXINE SODIUM
  9. PRIVIGEN [Suspect]
     Active Substance: HUMAN IMMUNOGLOBULIN G
     Indication: IMMUNODEFICIENCY
     Dosage: START MAR-2014
     Route: 042
  10. EPIPEN [Concomitant]
     Active Substance: EPINEPHRINE
  11. CALCIUM VITAMIN D3 [Concomitant]
     Dosage: 1 CAPSULE
     Route: 048
  12. MIRCETTE 21-5 [Concomitant]
     Dosage: 1 TAB
     Route: 048

REACTIONS (2)
  - Metastases to lymph nodes [Unknown]
  - Thyroid cancer [Recovered/Resolved]

NARRATIVE: CASE EVENT DATE: 201502
